FAERS Safety Report 4835980-3 (Version None)
Quarter: 2005Q4

REPORT INFORMATION
  Report Type: 
  Country: None (occurrence: None)
  Receive Date: 20051123
  Receipt Date: 20051116
  Transmission Date: 20060501
  Serious: Yes (Other)
  Sender: FDA-Public Use
  Company Number: US-JNJFOC-20050904518

PATIENT
  Sex: Male

DRUGS (3)
  1. REMICADE [Suspect]
     Indication: ANKYLOSING SPONDYLITIS
     Route: 042
  2. NON-STEROIDAL MEDICATIONS [Concomitant]
  3. ATROPINE [Concomitant]

REACTIONS (1)
  - UVEITIS [None]
